FAERS Safety Report 5525268-X (Version None)
Quarter: 2007Q4

REPORT INFORMATION
  Report Type: 
  Country: None (occurrence: None)
  Receive Date: 20071126
  Receipt Date: 20071121
  Transmission Date: 20080405
  Serious: Yes (Hospitalization)
  Sender: FDA-Public Use
  Company Number: FR-BRISTOL-MYERS SQUIBB COMPANY-13991054

PATIENT
  Age: 70 Year
  Sex: Male

DRUGS (10)
  1. AMIKLIN INJ 1 G [Suspect]
     Route: 042
     Dates: start: 20071009
  2. VANCOMYCIN [Suspect]
     Dates: start: 20071009, end: 20071010
  3. CEFTRIAXONE [Suspect]
     Route: 042
     Dates: start: 20071008
  4. INEXIUM [Concomitant]
  5. DEDROGYL [Concomitant]
  6. EZETROL [Concomitant]
  7. CALCIDIA [Concomitant]
  8. UMULINE PROFIL [Concomitant]
  9. LANTUS [Concomitant]
  10. APIDRA [Concomitant]

REACTIONS (2)
  - PRURITUS [None]
  - RASH [None]
